FAERS Safety Report 9413418 (Version 2)
Quarter: 2013Q3

REPORT INFORMATION
  Report Type: Spontaneous
  Country: SK (occurrence: None)
  Receive Date: 20130718
  Receipt Date: 20130730
  Transmission Date: 20140515
  Serious: Yes (Hospitalization)
  Sender: FDA-Public Use
  Company Number: NGX_01898_2013

PATIENT
  Sex: Male

DRUGS (2)
  1. QUTENZA [Suspect]
     Indication: PAIN
     Dosage: DF (PATCH APPLIED ON SOLES OF LEGS) TOPICAL
     Dates: start: 20130617, end: 20130617
  2. ANALGESICS (UNKNOWN) [Suspect]

REACTIONS (4)
  - Off label use [None]
  - Monoplegia [None]
  - Urinary retention [None]
  - Pain [None]
